FAERS Safety Report 6315064-8 (Version None)
Quarter: 2009Q3

REPORT INFORMATION
  Report Type: 
  Country: None (occurrence: None)
  Receive Date: 20090819
  Receipt Date: 20090810
  Transmission Date: 20100115
  Serious: Yes (Other)
  Sender: FDA-Public Use
  Company Number: CA-JNJFOC-20090801766

PATIENT
  Age: 66 Year
  Sex: Male
  Weight: 95.3 kg

DRUGS (15)
  1. REMICADE [Suspect]
     Indication: RHEUMATOID ARTHRITIS
     Route: 042
  2. METHOTREXATE [Suspect]
     Indication: RHEUMATOID ARTHRITIS
     Route: 048
  3. ALTACE [Concomitant]
     Indication: PROTEINURIA
     Route: 048
  4. CALCIUM AND VITAMIN D [Concomitant]
     Indication: OSTEOPOROSIS
     Dosage: 2 CAPS DAILY
     Route: 048
  5. PROSCAR [Concomitant]
     Indication: PROSTATIC DISORDER
     Route: 048
  6. GLYBURIDE [Concomitant]
     Indication: BLOOD GLUCOSE INCREASED
     Route: 048
  7. BISOPROLOL [Concomitant]
     Indication: BLOOD PRESSURE
     Route: 048
  8. CELEBREX [Concomitant]
     Indication: RHEUMATOID ARTHRITIS
     Route: 048
  9. LEUCOVORIN CALCIUM [Concomitant]
     Route: 048
  10. ZYLOPRIM [Concomitant]
     Route: 048
  11. PREDNISONE [Concomitant]
     Route: 048
  12. FOSAMAX [Concomitant]
     Indication: OSTEOPOROSIS
     Route: 048
  13. COUMADIN [Concomitant]
     Route: 048
  14. LIPITOR [Concomitant]
     Indication: BLOOD CHOLESTEROL
     Route: 048
  15. DILAUDID [Concomitant]
     Indication: RHEUMATOID ARTHRITIS
     Route: 048

REACTIONS (1)
  - LYMPHOMA [None]
